FAERS Safety Report 22226870 (Version 1)
Quarter: 2023Q2

REPORT INFORMATION
  Report Type: Spontaneous
  Country: JP (occurrence: JP)
  Receive Date: 20230419
  Receipt Date: 20230419
  Transmission Date: 20230721
  Serious: Yes (Hospitalization)
  Sender: FDA-Public Use
  Company Number: JP-BAXTER-2023BAX017880

PATIENT
  Age: 80 Year
  Sex: Male

DRUGS (2)
  1. REGUNEAL LCA [Suspect]
     Active Substance: CALCIUM CHLORIDE\DEXTROSE MONOHYDRATE\HYDROCHLORIC ACID\MAGNESIUM CHLORIDE\SODIUM BICARBONATE\SODIUM
     Dosage: 2000ML, TWICE (DOSING INTERVAL NOT REPORTED)
     Route: 033
     Dates: start: 20220624
  2. EXTRANEAL [Suspect]
     Active Substance: CALCIUM CHLORIDE\ICODEXTRIN\MAGNESIUM CHLORIDE\SODIUM CHLORIDE\SODIUM LACTATE
     Dosage: 1500ML, ONCE (DOSING INTERVAL NOT REPORTED)
     Route: 033
     Dates: start: 20220624

REACTIONS (2)
  - Weight increased [Recovered/Resolved]
  - Hypervolaemia [Recovered/Resolved]
